FAERS Safety Report 25844032 (Version 1)
Quarter: 2025Q3

REPORT INFORMATION
  Report Type: Spontaneous
  Country: CA (occurrence: CA)
  Receive Date: 20250925
  Receipt Date: 20250925
  Transmission Date: 20251021
  Serious: Yes (Other)
  Sender: AUROBINDO
  Company Number: CA-AUROBINDO-AUR-APL-2025-048310

PATIENT
  Age: 35 Year
  Sex: Female

DRUGS (2)
  1. TRANEXAMIC ACID [Suspect]
     Active Substance: TRANEXAMIC ACID
     Indication: Genital haemorrhage
     Route: 065
  2. MIRENA [Suspect]
     Active Substance: LEVONORGESTREL
     Indication: Product used for unknown indication
     Dosage: INTRA-UTERINE ROUTE
     Route: 065

REACTIONS (2)
  - Drug ineffective [Recovering/Resolving]
  - Device expulsion [Recovering/Resolving]
